FAERS Safety Report 14081838 (Version 1)
Quarter: 2017Q4

REPORT INFORMATION
  Report Type: Spontaneous
  Country: JP (occurrence: JP)
  Receive Date: 20171013
  Receipt Date: 20171013
  Transmission Date: 20180321
  Serious: Yes (Other)
  Sender: FDA-Public Use
  Company Number: JP-PFIZER INC-2017440051

PATIENT

DRUGS (3)
  1. VENETLIN [Concomitant]
     Active Substance: ALBUTEROL SULFATE
     Dosage: UNK
  2. FLUTIDE [Concomitant]
     Active Substance: FLUTICASONE PROPIONATE
     Dosage: UNK
  3. INTAL [Suspect]
     Active Substance: CROMOLYN SODIUM
     Dosage: UNK
     Route: 055

REACTIONS (1)
  - Gastrointestinal fungal infection [Unknown]
